FAERS Safety Report 4985203-X (Version None)
Quarter: 2006Q2

REPORT INFORMATION
  Report Type: 
  Country: None (occurrence: None)
  Receive Date: 20060427
  Receipt Date: 20050124
  Transmission Date: 20061013
  Serious: Yes (Death, Hospitalization)
  Sender: FDA-Public Use
  Company Number: US-MERCK-0501USA03638

PATIENT
  Age: 83 Year
  Sex: Female

DRUGS (13)
  1. VIOXX [Suspect]
     Route: 048
     Dates: start: 20000401, end: 20020403
  2. FOSAMAX [Concomitant]
     Route: 065
  3. PRILOSEC [Concomitant]
     Route: 065
  4. PRINIVIL [Concomitant]
     Route: 065
  5. COUMADIN [Concomitant]
     Route: 065
  6. ZOCOR [Concomitant]
     Route: 065
  7. DITROPAN [Concomitant]
     Route: 065
  8. TEMAZEPAM [Concomitant]
     Route: 065
  9. HYDROCHLOROTHIAZIDE [Concomitant]
     Route: 065
  10. LORTAB [Concomitant]
     Route: 065
  11. XANAX [Concomitant]
     Route: 065
  12. LEVAQUIN [Concomitant]
     Route: 065
  13. MACROBID [Concomitant]
     Route: 065

REACTIONS (9)
  - CARDIAC FAILURE ACUTE [None]
  - HEADACHE [None]
  - HOSPITALISATION [None]
  - HYPOXIA [None]
  - NAUSEA [None]
  - RESPIRATORY ARREST [None]
  - SUBDURAL HAEMATOMA [None]
  - TENDONITIS [None]
  - UPPER GASTROINTESTINAL HAEMORRHAGE [None]
